FAERS Safety Report 13846210 (Version 1)
Quarter: 2017Q3

REPORT INFORMATION
  Report Type: Spontaneous
  Country: US (occurrence: US)
  Receive Date: 20170808
  Receipt Date: 20170808
  Transmission Date: 20171127
  Serious: No
  Sender: FDA-Public Use
  Company Number: US-ROCHE-711657

PATIENT
  Sex: Female
  Weight: 57.3 kg

DRUGS (2)
  1. BONIVA [Suspect]
     Active Substance: IBANDRONATE SODIUM
     Indication: OSTEOPENIA
     Route: 048
  2. PREDNISONE. [Concomitant]
     Active Substance: PREDNISONE
     Dosage: DRUG REPORTED AS PRENISONE
     Route: 065

REACTIONS (1)
  - Back pain [Not Recovered/Not Resolved]
